FAERS Safety Report 15419485 (Version 1)
Quarter: 2018Q3

REPORT INFORMATION
  Report Type: Report from Study
  Country: US (occurrence: US)
  Receive Date: 20180924
  Receipt Date: 20180924
  Transmission Date: 20181010
  Serious: Yes (Hospitalization)
  Sender: FDA-Public Use
  Company Number: US-OTSUKA-2018_031416

PATIENT
  Sex: Male

DRUGS (1)
  1. TOLVAPTAN [Suspect]
     Active Substance: TOLVAPTAN
     Indication: BLOOD OSMOLARITY
     Dosage: 30 MG, QD
     Route: 048
     Dates: start: 20180817

REACTIONS (2)
  - Disease progression [Unknown]
  - Incorrect dose administered [Unknown]
